FAERS Safety Report 11481414 (Version 1)
Quarter: 2015Q3

REPORT INFORMATION
  Report Type: Spontaneous
  Country: US (occurrence: US)
  Receive Date: 20150909
  Receipt Date: 20150909
  Transmission Date: 20151125
  Serious: No
  Sender: FDA-Public Use
  Company Number: US-SHIRE-US201511100

PATIENT
  Age: 17 Year
  Sex: Female

DRUGS (4)
  1. INTUNIV [Suspect]
     Active Substance: GUANFACINE HYDROCHLORIDE
     Indication: ATTENTION DEFICIT/HYPERACTIVITY DISORDER
     Dosage: 1 MG, UNKNOWN
     Route: 048
     Dates: start: 201507, end: 201508
  2. INTUNIV [Suspect]
     Active Substance: GUANFACINE HYDROCHLORIDE
     Dosage: UNK, UNKNOWN
     Route: 048
     Dates: start: 2012
  3. INTUNIV [Suspect]
     Active Substance: GUANFACINE HYDROCHLORIDE
     Dosage: 2 MG, UNKNOWN
     Route: 048
     Dates: end: 2015
  4. INTUNIV [Suspect]
     Active Substance: GUANFACINE HYDROCHLORIDE
     Dosage: 1 MG, UNKNOWN
     Route: 048
     Dates: start: 20150823

REACTIONS (4)
  - Tremor [Not Recovered/Not Resolved]
  - Nausea [Not Recovered/Not Resolved]
  - Drug dose omission [Recovered/Resolved]
  - Vomiting [Not Recovered/Not Resolved]

NARRATIVE: CASE EVENT DATE: 201508
